FAERS Safety Report 23862111 (Version 1)
Quarter: 2024Q2

REPORT INFORMATION
  Report Type: Spontaneous
  Country: GB (occurrence: GB)
  Receive Date: 20240516
  Receipt Date: 20240516
  Transmission Date: 20240716
  Serious: Yes (Disabling, Other)
  Sender: FDA-Public Use
  Company Number: None

PATIENT
  Age: 58 Year
  Sex: Female

DRUGS (2)
  1. LEVETIRACETAM [Suspect]
     Active Substance: LEVETIRACETAM
     Dosage: PC NO: 05060124642093 ON BOX?SN: 5YM353H1YE8M ON BOX?LOT: LAAH005 ON BOX
     Route: 065
  2. VENLAFAXINE [Concomitant]
     Active Substance: VENLAFAXINE HYDROCHLORIDE
     Dates: start: 2008

REACTIONS (6)
  - Alopecia [Unknown]
  - Circulatory collapse [Recovered/Resolved]
  - Amnesia [Unknown]
  - Neoplasm progression [Unknown]
  - Speech disorder [Unknown]
  - Arthralgia [Unknown]

NARRATIVE: CASE EVENT DATE: 20231101
